FAERS Safety Report 9354122 (Version 1)
Quarter: 2013Q2

REPORT INFORMATION
  Report Type: Spontaneous
  Country: US (occurrence: None)
  Receive Date: 20130613
  Receipt Date: 20130613
  Transmission Date: 20140414
  Serious: Yes (Death)
  Sender: FDA-Public Use
  Company Number: CABO-13002787

PATIENT
  Age: 43 Year
  Sex: Female

DRUGS (4)
  1. COMETRIQ (CABOZANTINIB) CAPSULE [Suspect]
     Indication: LUNG NEOPLASM MALIGNANT
     Route: 048
     Dates: start: 20130416
  2. TRIIODOTHYRONINE (LIOTHYRONINE SODIUM) [Concomitant]
  3. VIMPAT (LACOSAMIDE) [Concomitant]
  4. DEXAMETHASONE (DEXAMETHASONE SODIUM SUCCINATE) [Concomitant]

REACTIONS (5)
  - Oropharyngeal pain [None]
  - Erythema [None]
  - Decreased appetite [None]
  - Asthenia [None]
  - Fatigue [None]
